FAERS Safety Report 5930144-4 (Version None)
Quarter: 2008Q4

REPORT INFORMATION
  Report Type: 
  Country: None (occurrence: None)
  Receive Date: 20081024
  Receipt Date: 20081013
  Transmission Date: 20090506
  Serious: Yes (Other)
  Sender: FDA-Public Use
  Company Number: BR-PFIZER INC-2008086563

PATIENT
  Sex: Female
  Weight: 57 kg

DRUGS (3)
  1. DEPO-PROVERA SUSPENSION/INJ [Suspect]
     Indication: CONTRACEPTION
     Dates: start: 20070721, end: 20070721
  2. DEPO-PROVERA SUSPENSION/INJ [Suspect]
     Dates: start: 20080917, end: 20080917
  3. VOLTAREN [Concomitant]
     Dosage: FREQ:OCCASIONALLY

REACTIONS (1)
  - BLOOD GLUCOSE INCREASED [None]
